FAERS Safety Report 11718489 (Version 1)
Quarter: 2015Q4

REPORT INFORMATION
  Report Type: Report from Study
  Country: US (occurrence: US)
  Receive Date: 20151110
  Receipt Date: 20151110
  Transmission Date: 20160304
  Serious: Yes (Other)
  Sender: FDA-Public Use
  Company Number: US-AMGEN-USASL2015116346

PATIENT
  Sex: Female

DRUGS (1)
  1. ENBREL [Suspect]
     Active Substance: ETANERCEPT
     Indication: ANKYLOSING SPONDYLITIS
     Dosage: UNK
     Route: 065
     Dates: end: 2014

REACTIONS (7)
  - Mitral valve replacement [Unknown]
  - Arthralgia [Unknown]
  - Rheumatic fever [Unknown]
  - Peripheral swelling [Unknown]
  - Aortic valve replacement [Unknown]
  - Needle issue [Unknown]
  - Pyrexia [Unknown]

NARRATIVE: CASE EVENT DATE: 2015
